FAERS Safety Report 6270483-3 (Version None)
Quarter: 2009Q3

REPORT INFORMATION
  Report Type: 
  Country: None (occurrence: None)
  Receive Date: 20090716
  Receipt Date: 20090714
  Transmission Date: 20100115
  Serious: Yes (Life-Threatening, Hospitalization)
  Sender: FDA-Public Use
  Company Number: IT-BRISTOL-MYERS SQUIBB COMPANY-14671986

PATIENT
  Age: 64 Year
  Sex: Male
  Weight: 64 kg

DRUGS (7)
  1. CETUXIMAB [Suspect]
     Indication: HEAD AND NECK CANCER
     Dosage: RECENT INF:11JUN09
     Route: 042
     Dates: start: 20090514
  2. CISPLATIN [Suspect]
     Indication: HEAD AND NECK CANCER
     Dosage: RECENT INF:11JUN09
     Route: 042
     Dates: start: 20090520
  3. DOCETAXEL [Suspect]
     Indication: HEAD AND NECK CANCER
     Dosage: RECENT INF:11JUN09
     Route: 042
     Dates: start: 20090520
  4. FLUOROURACIL [Suspect]
     Indication: HEAD AND NECK CANCER
     Dosage: RECENT INF:11JUN09
     Route: 042
     Dates: start: 20090520
  5. ZEFIX [Concomitant]
     Indication: HEPATITIS C VIRUS TEST
     Route: 048
     Dates: start: 20090422
  6. DIAMOX [Concomitant]
     Route: 048
     Dates: start: 20090611, end: 20090612
  7. NEXIUM [Concomitant]
     Route: 048
     Dates: start: 20090611

REACTIONS (1)
  - DIVERTICULAR PERFORATION [None]
